FAERS Safety Report 8402867-9 (Version None)
Quarter: 2012Q2

REPORT INFORMATION
  Report Type: 
  Country: None (occurrence: None)
  Receive Date: 20120601
  Receipt Date: 20120524
  Transmission Date: 20120825
  Serious: Yes (Other)
  Sender: FDA-Public Use
  Company Number: US-BAYER-2011-037020

PATIENT
  Age: 18 Month
  Sex: Male

DRUGS (1)
  1. HELIXATE FS [Suspect]
     Indication: HAEMOPHILIA

REACTIONS (1)
  - ANTI FACTOR VIII ANTIBODY POSITIVE [None]
